FAERS Safety Report 5825006-7 (Version None)
Quarter: 2008Q3

REPORT INFORMATION
  Report Type: 
  Country: None (occurrence: None)
  Receive Date: 20080728
  Receipt Date: 20080716
  Transmission Date: 20090109
  Serious: Yes (Other)
  Sender: FDA-Public Use
  Company Number: US-PFIZER INC-2008060631

PATIENT
  Sex: Female
  Weight: 64.9 kg

DRUGS (7)
  1. LYRICA [Suspect]
     Indication: HERPES ZOSTER
  2. LYRICA [Suspect]
     Indication: NEUROPATHY PERIPHERAL
  3. MORPHINE [Concomitant]
  4. OXYCONTIN [Concomitant]
  5. ANTIHYPERTENSIVES [Concomitant]
  6. VITAMIN TAB [Concomitant]
  7. PLAVIX [Concomitant]

REACTIONS (1)
  - FALL [None]
